FAERS Safety Report 22049434 (Version 2)
Quarter: 2023Q2

REPORT INFORMATION
  Report Type: Spontaneous
  Country: FR (occurrence: FR)
  Receive Date: 20230301
  Receipt Date: 20230404
  Transmission Date: 20230721
  Serious: Yes (Death, Hospitalization, Other)
  Sender: FDA-Public Use
  Company Number: FR-AMGEN-FRASP2023035467

PATIENT
  Age: 54 Year
  Sex: Female
  Weight: 57 kg

DRUGS (1)
  1. LUMAKRAS [Suspect]
     Active Substance: SOTORASIB
     Indication: Product used for unknown indication
     Dosage: 8 UNK, QD
     Route: 048

REACTIONS (6)
  - Diarrhoea [Unknown]
  - Death [Fatal]
  - Renal failure [Unknown]
  - Dehydration [Unknown]
  - Weight decreased [Unknown]
  - Malnutrition [Unknown]

NARRATIVE: CASE EVENT DATE: 20230101
